FAERS Safety Report 26127012 (Version 1)
Quarter: 2025Q4

REPORT INFORMATION
  Report Type: Spontaneous
  Country: US (occurrence: US)
  Receive Date: 20251205
  Receipt Date: 20251205
  Transmission Date: 20260117
  Serious: No
  Sender: PRIMUS PHARMACEUTICALS
  Company Number: US-PRIMUS-2025-US-051869

PATIENT
  Age: 60 Year
  Sex: Female

DRUGS (7)
  1. IMPOYZ [Suspect]
     Active Substance: CLOBETASOL PROPIONATE
     Indication: Eczema
     Dosage: APPLY TOPICALLY TO AFFECTED AREAS TWICE DAILY FOR TWO WEEKS, TAKE A TWO DAY BREAK, REPEAT AS NEEDED
     Route: 061
     Dates: start: 20251029
  2. BENADRYL ALLERGY [Concomitant]
     Active Substance: DIPHENHYDRAMINE HYDROCHLORIDE
  3. MOTRIN [Concomitant]
     Active Substance: IBUPROFEN
  4. PHENTERMINE [Concomitant]
     Active Substance: PHENTERMINE
  5. VITAMIN D3 [Concomitant]
     Active Substance: CHOLECALCIFEROL
  6. LEXAPRO [Concomitant]
     Active Substance: ESCITALOPRAM OXALATE
  7. ENALAPRIL\HYDROCHLOROTHIAZIDE [Concomitant]
     Active Substance: ENALAPRIL\HYDROCHLOROTHIAZIDE

REACTIONS (2)
  - Drug ineffective for unapproved indication [Unknown]
  - Eczema [Unknown]
